FAERS Safety Report 10343264 (Version 2)
Quarter: 2014Q3

REPORT INFORMATION
  Report Type: Spontaneous
  Country: US (occurrence: US)
  Receive Date: 20140725
  Receipt Date: 20140902
  Transmission Date: 20150326
  Serious: Yes (Hospitalization, Other)
  Sender: FDA-Public Use
  Company Number: US-TEVA-496279USA

PATIENT
  Sex: Male

DRUGS (23)
  1. MYSOLINE [Suspect]
     Active Substance: PRIMIDONE
     Route: 065
  2. LYRICA [Suspect]
     Active Substance: PREGABALIN
     Route: 065
  3. GABITRIL [Suspect]
     Active Substance: TIAGABINE HYDROCHLORIDE
     Route: 065
  4. PHENOBARBITAL. [Suspect]
     Active Substance: PHENOBARBITAL
     Route: 065
  5. FELBAMATE. [Suspect]
     Active Substance: FELBAMATE
     Route: 065
  6. VALIUM [Suspect]
     Active Substance: DIAZEPAM
     Route: 065
  7. ZONISAMIDE. [Suspect]
     Active Substance: ZONISAMIDE
     Route: 065
  8. TOPIRAMATE. [Suspect]
     Active Substance: TOPIRAMATE
     Route: 065
  9. VIMPAT [Suspect]
     Active Substance: LACOSAMIDE
     Dosage: 500 MILLIGRAM DAILY;
     Route: 065
  10. DEPAKOTE [Suspect]
     Active Substance: DIVALPROEX SODIUM
     Route: 065
  11. VALPROIC ACID. [Suspect]
     Active Substance: VALPROIC ACID
     Route: 065
  12. LEVETIRACETAM. [Suspect]
     Active Substance: LEVETIRACETAM
     Route: 065
  13. DILANTIN [Suspect]
     Active Substance: PHENYTOIN
     Dosage: 200 MILLIGRAM DAILY;
     Route: 065
  14. DEPAKENE [Suspect]
     Active Substance: VALPROIC ACID
     Route: 065
  15. NEURONTIN [Suspect]
     Active Substance: GABAPENTIN
     Dosage: 900 MILLIGRAM DAILY;
     Route: 065
  16. TOPAMAX [Suspect]
     Active Substance: TOPIRAMATE
     Route: 065
  17. LAMICTAL [Suspect]
     Active Substance: LAMOTRIGINE
     Route: 065
  18. ZONEGRAN [Suspect]
     Active Substance: ZONISAMIDE
     Dosage: 400 MILLIGRAM DAILY;
     Route: 065
  19. CARBAMAZEPINE. [Suspect]
     Active Substance: CARBAMAZEPINE
     Route: 065
  20. TEGRETOL [Suspect]
     Active Substance: CARBAMAZEPINE
     Route: 065
  21. PREGABALIN. [Suspect]
     Active Substance: PREGABALIN
     Route: 065
  22. KEPPRA [Suspect]
     Active Substance: LEVETIRACETAM
     Route: 065
  23. PRIMIDONE. [Suspect]
     Active Substance: PRIMIDONE
     Route: 065

REACTIONS (11)
  - Clavicle fracture [Unknown]
  - Road traffic accident [Unknown]
  - Lower limb fracture [Unknown]
  - Ligament sprain [Unknown]
  - Laceration [Unknown]
  - Convulsion [Unknown]
  - Facial bones fracture [Unknown]
  - Foot fracture [Unknown]
  - Rib fracture [Unknown]
  - Spinal compression fracture [Unknown]
  - Joint injury [Unknown]
